FAERS Safety Report 16972322 (Version 6)
Quarter: 2024Q2

REPORT INFORMATION
  Report Type: Report from Study
  Country: BR (occurrence: BR)
  Receive Date: 20191029
  Receipt Date: 20240430
  Transmission Date: 20240716
  Serious: Yes (Hospitalization, Other)
  Sender: FDA-Public Use
  Company Number: BR-TAKEDA-2018TUS022782

PATIENT
  Sex: Female
  Weight: 88 kg

DRUGS (3)
  1. VEDOLIZUMAB [Suspect]
     Active Substance: VEDOLIZUMAB
     Indication: Crohn^s disease
     Dosage: 300 MILLIGRAM
     Route: 042
     Dates: start: 20180626
  2. VEDOLIZUMAB [Suspect]
     Active Substance: VEDOLIZUMAB
     Dosage: 300 MILLIGRAM
     Route: 042
     Dates: start: 2023
  3. CICLO [Concomitant]
     Indication: Contraception
     Dosage: UNK

REACTIONS (16)
  - Uterine contractions during pregnancy [Recovered/Resolved]
  - Appendicitis [Recovered/Resolved]
  - Crohn^s disease [Unknown]
  - Haemorrhage in pregnancy [Recovered/Resolved]
  - Hypersensitivity [Recovered/Resolved]
  - Gastrointestinal pain [Recovering/Resolving]
  - Pregnancy [Recovered/Resolved]
  - Constipation [Recovered/Resolved]
  - Blood pressure abnormal [Unknown]
  - Chest discomfort [Unknown]
  - Dyspnoea [Unknown]
  - Somnolence [Recovered/Resolved]
  - Bone pain [Recovered/Resolved]
  - Pain [Recovered/Resolved]
  - Rhinorrhoea [Recovered/Resolved]
  - Arthralgia [Recovered/Resolved]

NARRATIVE: CASE EVENT DATE: 20180101
